FAERS Safety Report 8477261-5 (Version None)
Quarter: 2012Q2

REPORT INFORMATION
  Report Type: 
  Country: None (occurrence: None)
  Receive Date: 20120622
  Receipt Date: 20120606
  Transmission Date: 20120825
  Serious: Yes (Hospitalization, Other)
  Sender: FDA-Public Use
  Company Number: JPI-P-021740

PATIENT
  Age: 38 Year
  Sex: Female

DRUGS (5)
  1. INSECT REPELLENT [Suspect]
     Indication: PROPHYLAXIS
  2. XYREM [Suspect]
     Indication: NARCOLEPSY
     Dosage: 6 GM (3 GM, 2 IN 1 D), ORAL 12 GM (6 GM, 2 IN 1 D), ORAL
     Route: 048
     Dates: start: 20061103
  3. XYREM [Suspect]
     Indication: NARCOLEPSY
     Dosage: 6 GM (3 GM, 2 IN 1 D), ORAL 12 GM (6 GM, 2 IN 1 D), ORAL
     Route: 048
     Dates: start: 20060425
  4. ACETAMINOPHEN AND OXYCODONE HCL [Concomitant]
  5. MORPHINE [Concomitant]

REACTIONS (23)
  - HYPERSENSITIVITY [None]
  - SKIN IRRITATION [None]
  - HYPOKALAEMIA [None]
  - CONFUSIONAL STATE [None]
  - HALLUCINATION [None]
  - SPINAL COLUMN STENOSIS [None]
  - OEDEMA PERIPHERAL [None]
  - PAIN IN EXTREMITY [None]
  - FORMICATION [None]
  - NEUROPATHY PERIPHERAL [None]
  - ROAD TRAFFIC ACCIDENT [None]
  - STRESS [None]
  - ARTHRITIS [None]
  - SPINAL CORD COMPRESSION [None]
  - INTERVERTEBRAL DISC PROTRUSION [None]
  - SKIN DISCOLOURATION [None]
  - SKIN BURNING SENSATION [None]
  - RASH [None]
  - HALLUCINATION, VISUAL [None]
  - ERYTHEMA [None]
  - PITUITARY TUMOUR [None]
  - WEIGHT DECREASED [None]
  - HEADACHE [None]
